FAERS Safety Report 4414587-6 (Version None)
Quarter: 2004Q3

REPORT INFORMATION
  Report Type: 
  Country: None (occurrence: None)
  Receive Date: 20040729
  Receipt Date: 20040719
  Transmission Date: 20050211
  Serious: Yes (Other)
  Sender: FDA-Public Use
  Company Number: 2004-DE-03989GD

PATIENT
  Sex: Male

DRUGS (12)
  1. CYCLOPHOSPHAMIDE [Suspect]
     Indication: PLASMACYTOMA
  2. PREDNISONE [Suspect]
     Indication: PLASMACYTOMA
  3. DEXAMETHASONE [Suspect]
     Indication: PLASMACYTOMA
  4. MELPHALAN (MELPHALAN) [Suspect]
     Indication: PLASMACYTOMA
  5. VINCRISTINE [Suspect]
     Indication: PLASMACYTOMA
  6. CARMUSTINE [Suspect]
     Indication: PLASMACYTOMA
  7. ADRIAMYCIN PFS [Suspect]
     Indication: PLASMACYTOMA
  8. NEVIRAPINE (NEVIRAPINE) (NEVIRAPINE) [Concomitant]
  9. STAVUDINE (STAVUDINE) [Concomitant]
  10. LAMIVUDINE (LAMIVUDINE) [Concomitant]
  11. ZIDOVUDINE [Concomitant]
  12. DIDANOSINE (DIDANOSINE) [Concomitant]

REACTIONS (5)
  - DRUG RESISTANCE [None]
  - EPSTEIN-BARR VIRUS ANTIBODY POSITIVE [None]
  - NEOPLASM RECURRENCE [None]
  - PLASMACYTOMA [None]
  - POLYNEUROPATHY [None]
